APPROVED DRUG PRODUCT: PHOSLO
Active Ingredient: CALCIUM ACETATE
Strength: 667MG **Federal Register determination that product was not discontinued or withdrawn for safety or effectiveness reasons**
Dosage Form/Route: TABLET;ORAL
Application: N019976 | Product #001
Applicant: FRESENIUS MEDICAL CARE RENAL THERAPIES GROUP LLC
Approved: Dec 10, 1990 | RLD: Yes | RS: No | Type: DISCN